FAERS Safety Report 8565909-6 (Version None)
Quarter: 2012Q3

REPORT INFORMATION
  Report Type: 
  Country: None (occurrence: None)
  Receive Date: 20120803
  Receipt Date: 20110824
  Transmission Date: 20120928
  Serious: No
  Sender: FDA-Public Use
  Company Number: US-ABBOTT-11P-163-0848783-00

PATIENT
  Age: 83 Year
  Sex: Female
  Weight: 49.032 kg

DRUGS (3)
  1. LISINOPRIL [Concomitant]
     Indication: HYPERTENSION
  2. METOPROLOL TARTRATE [Concomitant]
     Indication: CARDIAC DISORDER
  3. NIASPAN [Suspect]
     Indication: BLOOD CHOLESTEROL INCREASED
     Dates: start: 20110701

REACTIONS (1)
  - CONSTIPATION [None]
